FAERS Safety Report 9661640 (Version 2)
Quarter: 2013Q4

REPORT INFORMATION
  Report Type: Spontaneous
  Country: US (occurrence: US)
  Receive Date: 20131031
  Receipt Date: 20131031
  Transmission Date: 20140711
  Serious: No
  Sender: FDA-Public Use
  Company Number: US-PURDUE-USA-2010-0054443

PATIENT
  Sex: Female
  Weight: 61.22 kg

DRUGS (3)
  1. OXYCONTIN (NDA 22-272) [Suspect]
     Indication: PAIN
     Dosage: 40 MG, TID
     Dates: start: 20100914, end: 20100927
  2. OXYCONTIN (NDA 22-272) [Suspect]
     Dosage: 20 MG, UNK
  3. PERCOCET-5 [Concomitant]
     Indication: BREAKTHROUGH PAIN
     Dosage: 10 MG, UNK
     Route: 048

REACTIONS (5)
  - Abdominal distension [Unknown]
  - Abdominal pain upper [Unknown]
  - Eructation [Unknown]
  - Drug ineffective [Unknown]
  - Nausea [Unknown]
